FAERS Safety Report 25663993 (Version 1)
Quarter: 2025Q3

REPORT INFORMATION
  Report Type: Spontaneous
  Country: EU (occurrence: EU)
  Receive Date: 20250811
  Receipt Date: 20250811
  Transmission Date: 20251021
  Serious: Yes (Death)
  Sender: ALVOGEN
  Company Number: EU-THERAMEX-2025002707

PATIENT
  Age: 68 Year
  Sex: Female

DRUGS (1)
  1. TERIPARATIDE [Suspect]
     Active Substance: TERIPARATIDE
     Indication: Osteoporosis
     Dosage: 20 MICROGRAMS PER INJECTION, ONE INJECTION PER DAY
     Route: 058
     Dates: start: 20241125

REACTIONS (1)
  - Death [Fatal]
